FAERS Safety Report 15288416 (Version 2)
Quarter: 2018Q3

REPORT INFORMATION
  Report Type: Spontaneous
  Country: US (occurrence: US)
  Receive Date: 20180817
  Receipt Date: 20180926
  Transmission Date: 20181010
  Serious: Yes (Other)
  Sender: FDA-Public Use
  Company Number: US-ELI_LILLY_AND_COMPANY-US201808003728

PATIENT
  Sex: Male

DRUGS (2)
  1. TALTZ [Suspect]
     Active Substance: IXEKIZUMAB
     Indication: PSORIASIS
     Dosage: 80 MG, EVERY FOUR WEEKS
     Route: 065
     Dates: start: 20180601, end: 20180605
  2. TALTZ [Suspect]
     Active Substance: IXEKIZUMAB
     Indication: PSORIATIC ARTHROPATHY

REACTIONS (6)
  - Throat tightness [Unknown]
  - Dizziness [Unknown]
  - Palpitations [Unknown]
  - Nausea [Unknown]
  - Contusion [Unknown]
  - Abdominal distension [Unknown]
